FAERS Safety Report 7396647-3 (Version None)
Quarter: 2011Q2

REPORT INFORMATION
  Report Type: 
  Country: None (occurrence: None)
  Receive Date: 20110406
  Receipt Date: 20110331
  Transmission Date: 20111010
  Serious: Yes (Death, Other)
  Sender: FDA-Public Use
  Company Number: PHFR2011GB00547

PATIENT
  Sex: Male

DRUGS (2)
  1. CLOZARIL [Suspect]
     Indication: ALCOHOLIC PSYCHOSIS
     Dosage: UNK MG, UNK
     Route: 048
     Dates: start: 20091106
  2. IRON [Concomitant]
     Indication: HAEMOGLOBIN DECREASED
     Dosage: UNK DF, UNK

REACTIONS (23)
  - SCAR [None]
  - ARRHYTHMIA [None]
  - WHEEZING [None]
  - PERICARDIAL EFFUSION [None]
  - PULMONARY CONGESTION [None]
  - RECTAL HAEMORRHAGE [None]
  - CHOLELITHIASIS [None]
  - MYOCARDIAL ISCHAEMIA [None]
  - CORONARY ARTERY OCCLUSION [None]
  - LOWER RESPIRATORY TRACT INFECTION [None]
  - PULMONARY OEDEMA [None]
  - BRONCHITIS [None]
  - BLADDER DILATATION [None]
  - VENOUS INSUFFICIENCY [None]
  - MALAISE [None]
  - HEPATIC STEATOSIS [None]
  - PETECHIAE [None]
  - MYOCARDIAL INFARCTION [None]
  - ARTERIOSCLEROSIS CORONARY ARTERY [None]
  - MENINGEAL DISORDER [None]
  - ATRIAL HYPERTROPHY [None]
  - CARDIAC FAILURE ACUTE [None]
  - RENAL CYST [None]
